FAERS Safety Report 9637731 (Version 1)
Quarter: 2013Q4

REPORT INFORMATION
  Report Type: Spontaneous
  Country: IN (occurrence: IN)
  Receive Date: 20131022
  Receipt Date: 20131022
  Transmission Date: 20140711
  Serious: Yes (Other)
  Sender: FDA-Public Use
  Company Number: IN-ASTRAZENECA-2013SE05484

PATIENT
  Age: 55 Year
  Sex: Male

DRUGS (7)
  1. BUPIVACAINE [Suspect]
     Route: 053
  2. LIDOCAINE WITH ADRENALINE [Suspect]
     Route: 053
  3. ATORVASTATIN [Concomitant]
     Route: 048
  4. AMLODIPINE [Concomitant]
     Route: 048
  5. RANITIDINE [Concomitant]
     Route: 048
  6. METOCLOPRAMIDE [Concomitant]
  7. DIAZEPAM [Concomitant]
     Route: 048

REACTIONS (3)
  - Aphasia [Recovered/Resolved]
  - Blood pressure increased [Recovered/Resolved]
  - Dysphonia [Recovered/Resolved]
